FAERS Safety Report 16766256 (Version 5)
Quarter: 2020Q3

REPORT INFORMATION
  Report Type: Other
  Country: PL (occurrence: PL)
  Receive Date: 20190903
  Receipt Date: 20200703
  Transmission Date: 20201102
  Serious: Yes (Death, Life-Threatening, Hospitalization, Other)
  Sender: FDA-Public Use
  Company Number: PL-MACLEODS PHARMACEUTICALS US LTD-MAC2019022772

PATIENT

DRUGS (21)
  1. AMOXICILLIN/CLAVULANATE POTASSIUM [Interacting]
     Active Substance: AMOXICILLIN\CLAVULANATE POTASSIUM
     Indication: URINARY TRACT INFECTION
     Dosage: UNK
     Route: 065
  2. PANTOPRAZOLE [Interacting]
     Active Substance: PANTOPRAZOLE
     Indication: GASTROOESOPHAGEAL REFLUX DISEASE
     Dosage: 40 MILLIGRAM, QD
     Route: 048
  3. PANTOPRAZOLE [Interacting]
     Active Substance: PANTOPRAZOLE
     Indication: REFLUX GASTRITIS
     Dosage: 10 MILLIGRAM, QD
     Route: 048
  4. AMOXICILLIN/CLAVULANATE POTASSIUM [Interacting]
     Active Substance: AMOXICILLIN\CLAVULANATE POTASSIUM
     Indication: BACTERIURIA
  5. CEFUROXIME. [Interacting]
     Active Substance: CEFUROXIME
     Indication: URINARY TRACT INFECTION
     Dosage: 50 MILLIGRAM, QD
     Route: 048
  6. CIPROFLOXACIN. [Interacting]
     Active Substance: CIPROFLOXACIN
     Indication: URINARY TRACT INFECTION
     Dosage: UNK
     Route: 065
  7. ITOPRIDE [Interacting]
     Active Substance: ITOPRIDE
     Indication: GASTROOESOPHAGEAL REFLUX DISEASE
     Dosage: 150 MILLIGRAM, QD, 50 MILLIGRAM, TID
     Route: 048
  8. CEFUROXIME. [Interacting]
     Active Substance: CEFUROXIME
     Indication: BACTERIAL INFECTION
  9. OLANZAPINE. [Interacting]
     Active Substance: OLANZAPINE
     Dosage: 10 MILLIGRAM, QD
     Route: 048
  10. LEVOFLOXACIN. [Interacting]
     Active Substance: LEVOFLOXACIN
     Indication: BACTERIAL INFECTION
  11. ARIPIPRAZOLE TABLET [Interacting]
     Active Substance: ARIPIPRAZOLE
     Indication: BIPOLAR DISORDER
     Dosage: 7.5 MILLIGRAM, QD TABLET
     Route: 048
  12. CIPROFLOXACIN. [Interacting]
     Active Substance: CIPROFLOXACIN
     Indication: BACTERIURIA
  13. NIFUROXAZIDE [Interacting]
     Active Substance: NIFUROXAZIDE
     Indication: PRODUCT USED FOR UNKNOWN INDICATION
     Dosage: UNK
     Route: 065
  14. ITOPRIDE [Interacting]
     Active Substance: ITOPRIDE
     Indication: REFLUX GASTRITIS
     Dosage: 50 MG, QD
     Route: 048
  15. SULFAMETHOXAZOLE,TRIMETHOPRIM [Interacting]
     Active Substance: SULFAMETHOXAZOLE\TRIMETHOPRIM
     Indication: BACTERIURIA
  16. LEVOFLOXACIN. [Interacting]
     Active Substance: LEVOFLOXACIN
     Indication: BACTERIAL INFECTION
     Dosage: UNK
     Route: 065
  17. NIFUROXAZIDE [Interacting]
     Active Substance: NIFUROXAZIDE
     Indication: DIARRHOEA
  18. NIFUROXAZIDE [Interacting]
     Active Substance: NIFUROXAZIDE
     Indication: URINARY TRACT INFECTION
  19. SULFAMETHOXAZOLE,TRIMETHOPRIM [Interacting]
     Active Substance: SULFAMETHOXAZOLE\TRIMETHOPRIM
     Indication: BACTERIAL INFECTION
     Dosage: UNK
     Route: 065
  20. OLANZAPINE. [Suspect]
     Active Substance: OLANZAPINE
     Indication: BIPOLAR DISORDER
     Dosage: 10 MILLIGRAM, QD, HARD CAPSULE
     Route: 048
  21. NIFUROXAZIDE [Interacting]
     Active Substance: NIFUROXAZIDE
     Indication: ABDOMINAL PAIN

REACTIONS (32)
  - Intestinal perforation [Fatal]
  - Diarrhoea [Fatal]
  - Gastrointestinal perforation [Fatal]
  - Inhibitory drug interaction [Not Recovered/Not Resolved]
  - Breath odour [Unknown]
  - Parosmia [Fatal]
  - Pseudomembranous colitis [Fatal]
  - Pyrexia [Fatal]
  - Drug ineffective [Fatal]
  - Gastrooesophageal reflux disease [Fatal]
  - Dyspepsia [Fatal]
  - Drug interaction [Fatal]
  - Condition aggravated [Unknown]
  - Taste disorder [Not Recovered/Not Resolved]
  - Parosmia [Unknown]
  - Condition aggravated [Not Recovered/Not Resolved]
  - Dysbiosis [Unknown]
  - Condition aggravated [Fatal]
  - Trimethylaminuria [Not Recovered/Not Resolved]
  - Urine odour abnormal [Not Recovered/Not Resolved]
  - Abdominal pain upper [Fatal]
  - Potentiating drug interaction [Unknown]
  - Megacolon [Fatal]
  - Clostridium difficile infection [Fatal]
  - White blood cells urine [Fatal]
  - Bacterial test positive [Unknown]
  - Peritonitis [Fatal]
  - Bacterial test positive [Fatal]
  - Drug resistance [Unknown]
  - Dysbiosis [Not Recovered/Not Resolved]
  - Oral discomfort [Unknown]
  - Drug ineffective [Unknown]
